FAERS Safety Report 6906733-7 (Version None)
Quarter: 2010Q3

REPORT INFORMATION
  Report Type: 
  Country: None (occurrence: None)
  Receive Date: 20100804
  Receipt Date: 20100723
  Transmission Date: 20110219
  Serious: Yes (Other)
  Sender: FDA-Public Use
  Company Number: US-BAYER-201029426NA

PATIENT

DRUGS (4)
  1. MAGNEVIST [Suspect]
     Indication: ARTHROGRAM
     Dosage: AS USED: 1 ML  UNIT DOSE: 10 ML
     Route: 014
  2. NORMAL SALINE [Suspect]
     Dosage: AS USED: 10 ML
     Route: 014
  3. LIDOCAINE [Suspect]
     Dosage: AS USED: 5 ML  UNIT DOSE: 10 ML
     Route: 014
  4. OPTIRAY 350 [Suspect]
     Dosage: 5-10 ML
     Route: 014

REACTIONS (2)
  - ARTHRITIS [None]
  - JOINT EFFUSION [None]
